FAERS Safety Report 14954511 (Version 1)
Quarter: 2018Q2

REPORT INFORMATION
  Report Type: Other
  Country: BE (occurrence: BE)
  Receive Date: 20180530
  Receipt Date: 20180530
  Transmission Date: 20180711
  Serious: Yes (Death)
  Sender: FDA-Public Use
  Company Number: BE-BIODELIVERY SCIENCES INTERNATIONAL-2016BDSI0082

PATIENT
  Age: 30 Year
  Sex: Male

DRUGS (2)
  1. U-47700 [Suspect]
     Active Substance: U-47700
     Indication: PRODUCT USED FOR UNKNOWN INDICATION
  2. FENTANYL. [Suspect]
     Active Substance: FENTANYL
     Indication: PRODUCT USED FOR UNKNOWN INDICATION

REACTIONS (1)
  - Toxicity to various agents [Fatal]

NARRATIVE: CASE EVENT DATE: 201601
